FAERS Safety Report 23560611 (Version 1)
Quarter: 2024Q1

REPORT INFORMATION
  Report Type: Spontaneous
  Country: TR (occurrence: TR)
  Receive Date: 20240223
  Receipt Date: 20240223
  Transmission Date: 20240409
  Serious: Yes (Hospitalization, Other)
  Sender: FDA-Public Use
  Company Number: TR-ANIPHARMA-2024-TR-000006

PATIENT
  Age: 45 Year
  Sex: Female

DRUGS (5)
  1. CIPROFLOXACIN [Suspect]
     Active Substance: CIPROFLOXACIN
     Indication: Diarrhoea infectious
     Dosage: 500 MG TWICE DAILY
  2. COLCHICINE [Suspect]
     Active Substance: COLCHICINE
     Indication: Arthritis
     Dosage: 1 MG DAILY
  3. CANDESARTAN [Concomitant]
     Active Substance: CANDESARTAN
     Dosage: 16 MG
  4. HYDROCHLOROTHIAZIDE [Concomitant]
     Active Substance: HYDROCHLOROTHIAZIDE
     Dosage: 12.5 MG
  5. LEVOTHYROXINE [Concomitant]
     Active Substance: LEVOTHYROXINE\LEVOTHYROXINE SODIUM
     Dosage: 50 MICROGRAM

REACTIONS (2)
  - Drug interaction [Recovered/Resolved]
  - Rhabdomyolysis [Recovered/Resolved]
